FAERS Safety Report 4840362-4 (Version None)
Quarter: 2005Q4

REPORT INFORMATION
  Report Type: 
  Country: None (occurrence: None)
  Receive Date: 20051025
  Receipt Date: 20050125
  Transmission Date: 20060501
  Serious: Yes (Other)
  Sender: FDA-Public Use
  Company Number: US-JNJFOC-20050106568

PATIENT
  Age: 22 Year
  Sex: Female
  Weight: 74.8435 kg

DRUGS (1)
  1. FLEXERIL [Suspect]
     Indication: BACK PAIN
     Dosage: 10 MG, 3 IN 1 DAY, ORAL
     Route: 048

REACTIONS (1)
  - DRUG INEFFECTIVE [None]
